FAERS Safety Report 18590806 (Version 2)
Quarter: 2021Q1

REPORT INFORMATION
  Report Type: Report from Study
  Country: None (occurrence: ES)
  Receive Date: 20201208
  Receipt Date: 20210115
  Transmission Date: 20210419
  Serious: Yes (Other)
  Sender: FDA-Public Use
  Company Number: ES-ABBVIE-20K-144-3652216-00

PATIENT
  Age: 77 Year
  Sex: Male

DRUGS (4)
  1. DUODOPA [Suspect]
     Active Substance: CARBIDOPA\LEVODOPA
     Dosage: LOWERED THE CONTINUOUS DOSE TO 5 ML, ED: TO 3.5 ML
     Route: 050
     Dates: start: 202011
  2. ROLPRYNA [Concomitant]
     Active Substance: ROPINIROLE HYDROCHLORIDE
     Indication: PARKINSON^S DISEASE
     Route: 048
     Dates: end: 202011
  3. DUODOPA [Suspect]
     Active Substance: CARBIDOPA\LEVODOPA
     Indication: PARKINSON^S DISEASE
     Route: 050
     Dates: start: 20190829, end: 202011
  4. ROLPRYNA [Concomitant]
     Active Substance: ROPINIROLE HYDROCHLORIDE
     Dosage: DOSE LOWERED EVENING?NIGHT
     Route: 048
     Dates: start: 202011, end: 20201125

REACTIONS (6)
  - Fall [Recovering/Resolving]
  - Asthenia [Recovering/Resolving]
  - Cerebrovascular accident [Unknown]
  - Hallucination, visual [Recovered/Resolved]
  - Loss of personal independence in daily activities [Not Recovered/Not Resolved]
  - Therapeutic product effect incomplete [Unknown]

NARRATIVE: CASE EVENT DATE: 2020
